FAERS Safety Report 11984496 (Version 2)
Quarter: 2016Q1

REPORT INFORMATION
  Report Type: Spontaneous
  Country: FR (occurrence: FR)
  Receive Date: 20160201
  Receipt Date: 20160203
  Transmission Date: 20160526
  Serious: Yes (Death)
  Sender: FDA-Public Use
  Company Number: FR-JNJFOC-20160123728

PATIENT
  Age: 90 Year
  Sex: Male

DRUGS (13)
  1. CORDARONE [Concomitant]
     Active Substance: AMIODARONE HYDROCHLORIDE
     Indication: ATRIAL FIBRILLATION
     Dosage: 150 MG/3 ML 3 AMPULLAS PER  DAY
     Route: 042
     Dates: start: 20160104, end: 20160110
  2. LASILIX [Concomitant]
     Active Substance: FUROSEMIDE
     Indication: ACUTE PULMONARY OEDEMA
     Route: 042
     Dates: start: 20160110, end: 20160111
  3. AUGMENTIN [Concomitant]
     Active Substance: AMOXICILLIN\CLAVULANATE POTASSIUM
     Indication: LUNG DISORDER
     Route: 042
     Dates: start: 20160104, end: 20160110
  4. EUPANTOL [Concomitant]
     Active Substance: PANTOPRAZOLE SODIUM
     Route: 042
     Dates: start: 20160104, end: 20160111
  5. VENTOLINE [Concomitant]
     Active Substance: ALBUTEROL
     Dosage: 5 MG/2.5 ML
     Route: 055
     Dates: start: 20160104, end: 20160110
  6. XARELTO [Suspect]
     Active Substance: RIVAROXABAN
     Indication: ATRIAL FIBRILLATION
     Route: 048
     Dates: start: 20160104, end: 20160111
  7. XARELTO [Suspect]
     Active Substance: RIVAROXABAN
     Indication: CEREBROVASCULAR ACCIDENT PROPHYLAXIS
     Route: 048
     Dates: start: 20160104, end: 20160111
  8. ATROVENT [Concomitant]
     Active Substance: IPRATROPIUM BROMIDE
     Dosage: 0.5 MG/2 ML
     Route: 055
     Dates: start: 20160104, end: 20160110
  9. LASILIX [Concomitant]
     Active Substance: FUROSEMIDE
     Indication: ACUTE PULMONARY OEDEMA
     Dosage: 1/2-0-0
     Route: 042
     Dates: end: 20160104
  10. BISOPROLOL HEMIFUMARATE [Concomitant]
     Active Substance: BISOPROLOL FUMARATE
     Indication: CARDIAC FAILURE
     Route: 048
     Dates: start: 20160106, end: 20160111
  11. LASILIX [Concomitant]
     Active Substance: FUROSEMIDE
     Indication: ACUTE PULMONARY OEDEMA
     Dosage: 20MG/2ML
     Route: 042
     Dates: start: 20160105, end: 20160110
  12. PERFALGAN [Concomitant]
     Active Substance: ACETAMINOPHEN
     Route: 042
     Dates: start: 20160104, end: 20160111
  13. VALSARTAN. [Concomitant]
     Active Substance: VALSARTAN
     Indication: ESSENTIAL HYPERTENSION
     Route: 065
     Dates: end: 20160111

REACTIONS (3)
  - Upper gastrointestinal haemorrhage [Fatal]
  - Haematemesis [Fatal]
  - Melaena [Fatal]

NARRATIVE: CASE EVENT DATE: 20160111
